FAERS Safety Report 7624314-7 (Version None)
Quarter: 2011Q3

REPORT INFORMATION
  Report Type: 
  Country: None (occurrence: None)
  Receive Date: 20110720
  Receipt Date: 20110711
  Transmission Date: 20111222
  Serious: Yes (Disabling, Other)
  Sender: FDA-Public Use
  Company Number: BR-BAYER-201019643LA

PATIENT
  Age: 53 Year
  Sex: Female

DRUGS (10)
  1. TOPIRAMATE [Concomitant]
     Indication: CONVULSION
     Dosage: 2 DF (DAILY DOSE), ORAL
     Route: 048
     Dates: start: 20000101
  2. ETNA [Concomitant]
     Indication: NERVOUS SYSTEM DISORDER
     Dosage: 2 DF (DAILY DOSE), , ORAL
     Route: 048
     Dates: start: 20080101
  3. DEPAKOTE [Concomitant]
     Indication: CONVULSION
     Dosage: UNK
  4. FLUOXETINA [Concomitant]
     Indication: CONVULSION
  5. BETACORT [Concomitant]
     Indication: NERVOUS SYSTEM DISORDER
     Dosage: 540 MG, QD
     Route: 048
     Dates: start: 20110401
  6. BETASERON [Suspect]
     Indication: MULTIPLE SCLEROSIS
     Dosage: BETAJECT
     Route: 058
     Dates: start: 19990101
  7. BROMAZEPAM [Concomitant]
     Indication: INSOMNIA
     Dosage: 1 DF (DAILY DOSE), ONCE, ORAL
     Route: 048
     Dates: start: 20100923, end: 20100923
  8. PROPRANOLOL [Concomitant]
     Indication: HYPERTENSION
     Dosage: 40 MG, QD
     Route: 048
     Dates: start: 20070101
  9. DIETARY SUPPLEMENT [Concomitant]
     Indication: MEMORY IMPAIRMENT
  10. FLUOXETINA [Concomitant]
     Indication: BLOOD CHOLESTEROL ABNORMAL
     Route: 048
     Dates: start: 20080101

REACTIONS (27)
  - ABASIA [None]
  - NEUROPATHY PERIPHERAL [None]
  - BALANCE DISORDER [None]
  - HEAD DISCOMFORT [None]
  - GRIP STRENGTH DECREASED [None]
  - BURNING SENSATION [None]
  - SPEECH DISORDER [None]
  - VISUAL IMPAIRMENT [None]
  - FEELING COLD [None]
  - INJECTION SITE ATROPHY [None]
  - RHINORRHOEA [None]
  - BRADYPHRENIA [None]
  - GAIT DISTURBANCE [None]
  - FEELING ABNORMAL [None]
  - COUGH [None]
  - COORDINATION ABNORMAL [None]
  - SUDDEN VISUAL LOSS [None]
  - HYPOACUSIS [None]
  - TREMOR [None]
  - MULTIPLE SCLEROSIS [None]
  - EMOTIONAL DISORDER [None]
  - PAIN IN EXTREMITY [None]
  - INFLAMMATION [None]
  - DEHYDRATION [None]
  - CATARACT [None]
  - MULTIPLE SCLEROSIS RELAPSE [None]
  - EAR DISCOMFORT [None]
